FAERS Safety Report 9068774 (Version 1)
Quarter: 2013Q1

REPORT INFORMATION
  Report Type: Spontaneous
  Country: US (occurrence: None)
  Receive Date: 20130212
  Receipt Date: 20130212
  Transmission Date: 20140127
  Serious: Yes (Other)
  Sender: FDA-Public Use
  Company Number: None

PATIENT
  Sex: Female

DRUGS (1)
  1. DOXYCYCLINE HYCLATE [Suspect]
     Indication: ACNE
     Dosage: 50 MG 1 OR 2 DAILY PO
     Route: 048
     Dates: start: 20130117

REACTIONS (2)
  - Dyspepsia [None]
  - Pain [None]
